FAERS Safety Report 12913322 (Version 1)
Quarter: 2016Q4

REPORT INFORMATION
  Report Type: Spontaneous
  Country: US (occurrence: US)
  Receive Date: 20161104
  Receipt Date: 20161104
  Transmission Date: 20170207
  Serious: No
  Sender: FDA-Public Use
  Company Number: US-BIOMARINAP-US-2016-111694

PATIENT
  Age: 1 Year
  Sex: Male
  Weight: 12 kg

DRUGS (2)
  1. VIMIZIM [Suspect]
     Active Substance: ELOSULFASE ALFA
     Indication: PRODUCT USED FOR UNKNOWN INDICATION
     Dosage: 25 MG, UNK
     Route: 042
     Dates: start: 20151123
  2. NORMAL SALINE [Concomitant]
     Active Substance: SODIUM CHLORIDE
     Indication: PRODUCT USED FOR UNKNOWN INDICATION
     Dosage: 10 ML, UNK

REACTIONS (1)
  - Hypertension [Recovered/Resolved]

NARRATIVE: CASE EVENT DATE: 20161006
